FAERS Safety Report 14298979 (Version 1)
Quarter: 2017Q4

REPORT INFORMATION
  Report Type: Spontaneous
  Country: US (occurrence: US)
  Receive Date: 20171217
  Receipt Date: 20171217
  Transmission Date: 20180321
  Serious: Yes (Hospitalization)
  Sender: FDA-Public Use
  Company Number: None

PATIENT
  Age: 58 Year
  Sex: Female
  Weight: 69.3 kg

DRUGS (3)
  1. ACIPHEX [Concomitant]
     Active Substance: RABEPRAZOLE SODIUM
  2. CHAMOMILE TEA [Concomitant]
     Active Substance: MATRICARIA RECUTITA
  3. VICKS DAYQUIL SEVERE COLD AND FLU [Suspect]
     Active Substance: ACETAMINOPHEN\DEXTROMETHORPHAN HYDROBROMIDE\GUAIFENESIN\PHENYLEPHRINE HYDROCHLORIDE
     Indication: NASOPHARYNGITIS
     Dosage: ?          QUANTITY:2 CAPSULE(S);?
     Route: 048

REACTIONS (6)
  - Nausea [None]
  - Rhinorrhoea [None]
  - Asthenia [None]
  - Vomiting [None]
  - Dehydration [None]
  - Tremor [None]

NARRATIVE: CASE EVENT DATE: 20171214
